FAERS Safety Report 7873716-2 (Version None)
Quarter: 2011Q4

REPORT INFORMATION
  Report Type: 
  Country: None (occurrence: None)
  Receive Date: 20111017
  Receipt Date: 20101222
  Transmission Date: 20120403
  Serious: Yes (Other)
  Sender: FDA-Public Use
  Company Number: 2011S1000008

PATIENT
  Sex: Female

DRUGS (2)
  1. DARVOCET-N 100 [Suspect]
     Indication: ARTHRITIS
     Dosage: (600 MG,1 IN 1 D),ORAL
     Route: 048
     Dates: start: 19900101, end: 20101214
  2. DARVOCET-N 100 [Suspect]
     Indication: HEADACHE
     Dosage: (600 MG,1 IN 1 D),ORAL
     Route: 048
     Dates: start: 19900101, end: 20101214

REACTIONS (2)
  - CHEST PAIN [None]
  - CARDIAC DISORDER [None]
